FAERS Safety Report 7362050-5 (Version None)
Quarter: 2011Q1

REPORT INFORMATION
  Report Type: 
  Country: None (occurrence: None)
  Receive Date: 20110318
  Receipt Date: 20110311
  Transmission Date: 20110831
  Serious: Yes (Life-Threatening, Hospitalization)
  Sender: FDA-Public Use
  Company Number: IN-B.I. PHARMACEUTICALS,INC./RIDGEFIELD-2011-DE-01700GD

PATIENT
  Age: 75 Year
  Sex: Male

DRUGS (8)
  1. ETORICOXIB [Suspect]
     Indication: BACK PAIN
     Dosage: 90 MG
  2. ECOSPIRIN [Concomitant]
     Dosage: 75 MG
     Route: 048
  3. INSULIN MIXTARD [Concomitant]
     Indication: DIABETES MELLITUS
     Dosage: 34 U/ 24 U
     Route: 058
  4. LEVOTHYROXINE SODIUM [Concomitant]
     Indication: HYPERTHYROIDISM
     Dosage: 50 MCG
     Route: 048
  5. MICARDIS HCT [Suspect]
     Indication: HYPERTENSION
     Dosage: 40 MG
     Route: 048
  6. TORSEMIDE [Suspect]
     Dosage: 10 MG
     Route: 048
  7. ATORVASTATIN CALCIUM [Concomitant]
     Dosage: 10 MG
     Route: 048
  8. NIFEDIPINE [Concomitant]
     Indication: HYPERTENSION
     Dosage: 40 MG
     Route: 048

REACTIONS (17)
  - RESPIRATORY DISTRESS [None]
  - LEFT VENTRICULAR HYPERTROPHY [None]
  - HEART RATE DECREASED [None]
  - ELECTROCARDIOGRAM QRS COMPLEX PROLONGED [None]
  - SINUS BRADYCARDIA [None]
  - RENAL FAILURE ACUTE [None]
  - CARDIAC FAILURE CONGESTIVE [None]
  - PULMONARY OEDEMA [None]
  - ASTHENIA [None]
  - FATIGUE [None]
  - DYSPNOEA [None]
  - HYPONATRAEMIA [None]
  - HYPERKALAEMIA [None]
  - ACCELERATED HYPERTENSION [None]
  - NAUSEA [None]
  - OEDEMA PERIPHERAL [None]
  - CARDIOMEGALY [None]
